FAERS Safety Report 21918014 (Version 1)
Quarter: 2023Q1

REPORT INFORMATION
  Report Type: Spontaneous
  Country: RO (occurrence: RO)
  Receive Date: 20230127
  Receipt Date: 20230127
  Transmission Date: 20230418
  Serious: Yes (Death, Other)
  Sender: FDA-Public Use
  Company Number: RO-AMGEN-ROUSP2023011156

PATIENT

DRUGS (8)
  1. TRASTUZUMAB [Suspect]
     Active Substance: TRASTUZUMAB
     Indication: HER2 positive breast cancer
     Dosage: UNK
     Route: 065
  2. PERTUZUMAB [Concomitant]
     Active Substance: PERTUZUMAB
     Indication: HER2 positive breast cancer
     Dosage: UNK
  3. DOCETAXEL [Concomitant]
     Active Substance: DOCETAXEL
     Indication: HER2 positive breast cancer
     Dosage: UNK
  4. STANNOUS PYROPHOSPHATE [Concomitant]
     Active Substance: STANNOUS PYROPHOSPHATE
     Dosage: UNK
     Route: 040
  5. TECHNETIUM TC-99M PERTECHNETATE [Concomitant]
     Active Substance: TECHNETIUM TC-99M PERTECHNETATE
     Dosage: UNK
     Route: 040
  6. EPIRUBICIN [Concomitant]
     Active Substance: EPIRUBICIN
     Indication: HER2 positive breast cancer
     Dosage: UNK
  7. CYCLOPHOSPHAMIDE [Concomitant]
     Active Substance: CYCLOPHOSPHAMIDE
     Indication: HER2 positive breast cancer
     Dosage: UNK
  8. PACLITAXEL [Concomitant]
     Active Substance: PACLITAXEL
     Indication: HER2 positive breast cancer
     Dosage: UNK

REACTIONS (5)
  - Death [Fatal]
  - Cardiotoxicity [Unknown]
  - Off label use [Unknown]
  - Cardiac disorder [Unknown]
  - Ejection fraction decreased [Unknown]
